FAERS Safety Report 24939040 (Version 8)
Quarter: 2025Q4

REPORT INFORMATION
  Report Type: Spontaneous
  Country: US (occurrence: US)
  Receive Date: 20250206
  Receipt Date: 20251009
  Transmission Date: 20260117
  Serious: No
  Sender: PFIZER
  Company Number: US-PFIZER INC-202500022847

PATIENT
  Age: 17 Year
  Sex: Female
  Weight: 43.09 kg

DRUGS (2)
  1. GENOTROPIN [Suspect]
     Active Substance: SOMATROPIN
     Indication: Growth hormone deficiency
     Dosage: 1 MG, DAILY
  2. GENOTROPIN [Suspect]
     Active Substance: SOMATROPIN
     Dosage: 1.2 MG, DAILY

REACTIONS (5)
  - Food allergy [Unknown]
  - Drug dose omission by device [Unknown]
  - Device breakage [Unknown]
  - Device mechanical issue [Unknown]
  - Device delivery system issue [Unknown]
